FAERS Safety Report 8268084-0 (Version None)
Quarter: 2012Q2

REPORT INFORMATION
  Report Type: 
  Country: None (occurrence: None)
  Receive Date: 20120404
  Receipt Date: 20120213
  Transmission Date: 20120825
  Serious: Yes (Life-Threatening)
  Sender: FDA-Public Use
  Company Number: 2012SP008117

PATIENT
  Age: 72 Year
  Sex: Male
  Weight: 78.3 kg

DRUGS (5)
  1. POSACONAZOLE [Suspect]
  2. POSACONAZOLE [Suspect]
     Indication: PROPHYLAXIS
     Dosage: 600 MG;QD;PO
     Route: 048
     Dates: start: 20120208, end: 20120212
  3. POSACONAZOLE [Suspect]
     Indication: ASPERGILLOSIS
     Dosage: 600 MG;QD;PO
     Route: 048
     Dates: start: 20120208, end: 20120212
  4. POSACONAZOLE [Suspect]
     Indication: PROPHYLAXIS
     Dosage: 600 MG;QD;PO
     Route: 048
     Dates: start: 20120203, end: 20120222
  5. POSACONAZOLE [Suspect]
     Indication: ASPERGILLOSIS
     Dosage: 600 MG;QD;PO
     Route: 048
     Dates: start: 20120203, end: 20120222

REACTIONS (6)
  - PLATELET COUNT DECREASED [None]
  - ASPIRATION [None]
  - HYPOREFLEXIA [None]
  - HYPERTENSION [None]
  - SUBDURAL HAEMORRHAGE [None]
  - DISTURBANCE IN ATTENTION [None]
